FAERS Safety Report 24321429 (Version 1)
Quarter: 2024Q3

REPORT INFORMATION
  Report Type: Report from Study
  Country: US (occurrence: None)
  Receive Date: 20240916
  Receipt Date: 20240916
  Transmission Date: 20241017
  Serious: Yes (Other)
  Sender: ASTRAZENECA
  Company Number: 2024A205401

PATIENT
  Sex: Female

DRUGS (1)
  1. TRUQAP [Suspect]
     Active Substance: CAPIVASERTIB
     Indication: Breast cancer female
     Route: 048
     Dates: start: 202403

REACTIONS (7)
  - Blood glucose decreased [Unknown]
  - Loss of consciousness [Unknown]
  - Metastases to bone [Unknown]
  - Spinal fracture [Unknown]
  - Anaemia [Unknown]
  - Headache [Unknown]
  - Diarrhoea [Unknown]
